FAERS Safety Report 16170251 (Version 1)
Quarter: 2019Q2

REPORT INFORMATION
  Report Type: Spontaneous
  Country: US (occurrence: US)
  Receive Date: 20190408
  Receipt Date: 20190408
  Transmission Date: 20190711
  Serious: No
  Sender: FDA-Public Use
  Company Number: US-MTPC-MTDA2019-0042421

PATIENT

DRUGS (2)
  1. RADICAVA [Suspect]
     Active Substance: EDARAVONE
     Indication: AMYOTROPHIC LATERAL SCLEROSIS
     Dosage: 60 MG INFUSION OVER 60 MINUTES, DAILY DOSING FOR 14 DAYS FOLLOWED BY A 14 DAY DRUG FREE PERIOD
     Route: 042
  2. RADICAVA [Suspect]
     Active Substance: EDARAVONE
     Dosage: 60 MG INFUSION OVER 60 MINS, DAILY DOSING FOR 10/14 DAY PERIOD FOLLOWED BY A 14 DAY DRUG FREE PERIOD
     Route: 042

REACTIONS (1)
  - Dizziness [Recovered/Resolved]
